FAERS Safety Report 12162139 (Version 1)
Quarter: 2016Q1

REPORT INFORMATION
  Report Type: Spontaneous
  Country: US (occurrence: None)
  Receive Date: 20160308
  Receipt Date: 20160308
  Transmission Date: 20160526
  Serious: Yes (Hospitalization)
  Sender: FDA-Public Use
  Company Number: None

PATIENT
  Age: 85 Year
  Sex: Male
  Weight: 91.9 kg

DRUGS (9)
  1. NORCO [Concomitant]
     Active Substance: ACETAMINOPHEN\HYDROCODONE BITARTRATE
  2. FLOMAX [Concomitant]
     Active Substance: TAMSULOSIN HYDROCHLORIDE
  3. METHOTREXATE [Suspect]
     Active Substance: METHOTREXATE
     Indication: RHEUMATOID ARTHRITIS
     Dosage: CHRONIC?Q SUNDAY
     Route: 048
  4. SYNTHROID [Concomitant]
     Active Substance: LEVOTHYROXINE SODIUM
  5. FOLVITE [Concomitant]
     Active Substance: FOLIC ACID
  6. GLUMETZA [Concomitant]
     Active Substance: METFORMIN HYDROCHLORIDE
  7. AMLODIPINE [Concomitant]
     Active Substance: AMLODIPINE BESYLATE
  8. VITAMIN D3 [Concomitant]
     Active Substance: CHOLECALCIFEROL
  9. LASIX [Concomitant]
     Active Substance: FUROSEMIDE

REACTIONS (12)
  - Pancytopenia [None]
  - Tachycardia [None]
  - Asthenia [None]
  - Anaemia [None]
  - Thrombocytopenia [None]
  - Ascites [None]
  - Monoclonal gammopathy [None]
  - Tachypnoea [None]
  - Acute kidney injury [None]
  - Leukopenia [None]
  - Hypotension [None]
  - Acute respiratory failure [None]

NARRATIVE: CASE EVENT DATE: 20150810
